FAERS Safety Report 13285396 (Version 8)
Quarter: 2018Q1

REPORT INFORMATION
  Report Type: Report from Study
  Country: US (occurrence: US)
  Receive Date: 20170301
  Receipt Date: 20180317
  Transmission Date: 20180508
  Serious: Yes (Hospitalization)
  Sender: FDA-Public Use
  Company Number: US-ARIAD PHARMACEUTICALS, INC-2017US007810

PATIENT
  Sex: Male

DRUGS (5)
  1. PONATINIB [Suspect]
     Active Substance: PONATINIB
     Indication: CHRONIC MYELOID LEUKAEMIA
     Dosage: 30 MG, QD
     Route: 048
     Dates: start: 20170215
  2. PONATINIB [Suspect]
     Active Substance: PONATINIB
     Dosage: 15 MG, QD
     Route: 048
  3. PONATINIB [Suspect]
     Active Substance: PONATINIB
     Dosage: 30 MG, QD
     Route: 048
  4. PONATINIB [Suspect]
     Active Substance: PONATINIB
     Dosage: 15 MG, QOD
     Route: 048
  5. PONATINIB [Suspect]
     Active Substance: PONATINIB
     Dosage: 15 MG, QOD
     Route: 048

REACTIONS (20)
  - Oedema peripheral [Unknown]
  - Dysuria [Not Recovered/Not Resolved]
  - Chromaturia [Unknown]
  - Contusion [Unknown]
  - Dyspnoea [Not Recovered/Not Resolved]
  - Testicular swelling [Unknown]
  - Acne [Unknown]
  - Chest discomfort [Recovered/Resolved]
  - Joint swelling [Unknown]
  - Blister [Unknown]
  - Asthenia [Not Recovered/Not Resolved]
  - Dehydration [Unknown]
  - Wound [Unknown]
  - Rash [Not Recovered/Not Resolved]
  - Micturition urgency [Unknown]
  - Cough [Unknown]
  - Skin ulcer [Unknown]
  - Hypoaesthesia [Unknown]
  - Product use issue [Unknown]
  - Impaired healing [Unknown]
